FAERS Safety Report 9713738 (Version 1)
Quarter: 2013Q4

REPORT INFORMATION
  Report Type: Spontaneous
  Country: CH (occurrence: CH)
  Receive Date: 20131126
  Receipt Date: 20131126
  Transmission Date: 20140711
  Serious: Yes (Life-Threatening, Hospitalization)
  Sender: FDA-Public Use
  Company Number: CH-ABBVIE-13P-151-1171968-00

PATIENT
  Age: 55 Year
  Sex: Male

DRUGS (9)
  1. NORVIR [Suspect]
     Indication: HIV INFECTION
     Route: 048
  2. KETALGIN [Interacting]
     Indication: DRUG ABUSE
     Route: 048
  3. KETALGIN [Interacting]
  4. REYATAZ [Interacting]
     Indication: HIV INFECTION
     Route: 048
  5. ZIAGEN [Concomitant]
     Indication: PRODUCT USED FOR UNKNOWN INDICATION
     Route: 048
  6. ZIAGEN [Concomitant]
     Route: 048
     Dates: start: 20131025
  7. LAMIVUDINE [Concomitant]
     Indication: PRODUCT USED FOR UNKNOWN INDICATION
     Route: 048
  8. FOLIC ACID [Concomitant]
     Indication: PRODUCT USED FOR UNKNOWN INDICATION
     Route: 048
  9. PRAVASTATIN [Concomitant]
     Indication: PRODUCT USED FOR UNKNOWN INDICATION
     Route: 048

REACTIONS (6)
  - Electrocardiogram QT prolonged [Unknown]
  - Drug interaction [Unknown]
  - General physical health deterioration [Unknown]
  - Pneumonia [Unknown]
  - Renal failure [Recovered/Resolved]
  - Hepatitis C [Not Recovered/Not Resolved]
